FAERS Safety Report 5210656-1 (Version None)
Quarter: 2007Q1

REPORT INFORMATION
  Report Type: 
  Country: None (occurrence: None)
  Receive Date: 20070116
  Receipt Date: 20070116
  Transmission Date: 20070707
  Serious: No
  Sender: FDA-Public Use
  Company Number: None

PATIENT
  Sex: Female

DRUGS (1)
  1. ZONISAMIDE [Suspect]
     Indication: MIGRAINE
     Dosage: 100 MG, PO, 3 QD
     Route: 048
     Dates: start: 20060114, end: 20060421

REACTIONS (3)
  - HEADACHE [None]
  - NAUSEA [None]
  - VOMITING [None]
